FAERS Safety Report 10777495 (Version 3)
Quarter: 2015Q2

REPORT INFORMATION
  Report Type: Spontaneous
  Country: JP (occurrence: JP)
  Receive Date: 20150209
  Receipt Date: 20150430
  Transmission Date: 20150821
  Serious: Yes (Other)
  Sender: FDA-Public Use
  Company Number: JP-SA-2015SA014137

PATIENT
  Age: 66 Year
  Sex: Male

DRUGS (11)
  1. AVASTIN [Concomitant]
     Active Substance: BEVACIZUMAB
     Route: 041
     Dates: start: 201005
  2. CALCIUM LEVOFOLINATE [Concomitant]
     Active Substance: LEVOLEUCOVORIN CALCIUM
     Route: 041
     Dates: start: 201005
  3. ELPLAT [Suspect]
     Active Substance: OXALIPLATIN
     Indication: COLON CANCER
     Dosage: I.V INFUSION SOLUTION
     Route: 041
     Dates: start: 201005
  4. CPT-11 [Concomitant]
     Active Substance: IRINOTECAN
     Route: 041
  5. 5-FU [Suspect]
     Active Substance: FLUOROURACIL
     Indication: COLON CANCER
     Route: 042
  6. LACTULOSE. [Concomitant]
     Active Substance: LACTULOSE
  7. CALCIUM LEVOFOLINATE [Concomitant]
     Active Substance: LEVOLEUCOVORIN CALCIUM
     Route: 041
  8. 5-FU [Suspect]
     Active Substance: FLUOROURACIL
     Indication: COLON CANCER
     Route: 040
     Dates: start: 201005
  9. 5-FU [Suspect]
     Active Substance: FLUOROURACIL
     Indication: COLON CANCER
     Dosage: EVERY TWO DAYS
     Route: 041
     Dates: start: 201005
  10. 5-FU [Suspect]
     Active Substance: FLUOROURACIL
     Indication: COLON CANCER
     Route: 041
  11. PANITUMUMAB [Concomitant]
     Active Substance: PANITUMUMAB
     Route: 041

REACTIONS (11)
  - Oesophageal varices haemorrhage [Recovering/Resolving]
  - Haematemesis [Unknown]
  - Blood pressure decreased [Unknown]
  - Anaemia [Unknown]
  - Neuropathy peripheral [Unknown]
  - Encephalopathy [Recovering/Resolving]
  - Oesophageal varices haemorrhage [Recovered/Resolved]
  - Varices oesophageal [Unknown]
  - Splenomegaly [Unknown]
  - Platelet count decreased [Unknown]
  - Altered state of consciousness [Unknown]

NARRATIVE: CASE EVENT DATE: 201010
